FAERS Safety Report 13753139 (Version 1)
Quarter: 2017Q3

REPORT INFORMATION
  Report Type: Spontaneous
  Country: GB (occurrence: GB)
  Receive Date: 20170713
  Receipt Date: 20170713
  Transmission Date: 20171127
  Serious: Yes (Hospitalization, Disabling, Other)
  Sender: FDA-Public Use
  Company Number: GB-LUNDBECK-DKLU2034030

PATIENT
  Age: 8 Week
  Sex: Female

DRUGS (21)
  1. NITRAZEPAM [Suspect]
     Active Substance: NITRAZEPAM
     Route: 048
     Dates: start: 20170210, end: 20170211
  2. HAEMOPHILUS B CONJUGATE VACCINE NOS [Suspect]
     Active Substance: HAEMOPHILUS B CONJUGATE VACCINE
     Route: 051
     Dates: start: 20160909
  3. PARACETAMOL [Concomitant]
     Active Substance: ACETAMINOPHEN
     Indication: PRODUCT USED FOR UNKNOWN INDICATION
     Route: 065
  4. BEXSERO [Suspect]
     Active Substance: MENINGOCOCCAL GROUP B VACCINE
     Indication: IMMUNISATION
     Route: 051
     Dates: start: 20160809, end: 20160809
  5. BEXSERO [Suspect]
     Active Substance: MENINGOCOCCAL GROUP B VACCINE
     Route: 051
     Dates: start: 20161026, end: 20161026
  6. IBUPROFEN. [Concomitant]
     Active Substance: IBUPROFEN
     Indication: PRODUCT USED FOR UNKNOWN INDICATION
     Route: 065
  7. MOVICOL [Concomitant]
     Active Substance: POLYETHYLENE GLYCOL 3350\POTASSIUM CHLORIDE\SODIUM BICARBONATE\SODIUM CHLORIDE
     Indication: PRODUCT USED FOR UNKNOWN INDICATION
     Route: 065
  8. PREVNAR 13 [Suspect]
     Active Substance: PNEUMOCOCCAL 13-VALENT CONJUGATE VACCINE
     Route: 051
     Dates: start: 20161026, end: 20161026
  9. ROTARIX [Suspect]
     Active Substance: HUMAN ROTAVIRUS A TYPE G1P(8) STRAIN RIX4414 LIVE ANTIGEN
     Indication: IMMUNISATION
     Route: 048
     Dates: start: 20160809, end: 20160809
  10. CLORAL BETAINE [Concomitant]
     Indication: PRODUCT USED FOR UNKNOWN INDICATION
     Route: 065
  11. OMEPRAZOLE. [Concomitant]
     Active Substance: OMEPRAZOLE
     Indication: PRODUCT USED FOR UNKNOWN INDICATION
     Route: 065
  12. CLOTRIMAZOLE. [Concomitant]
     Active Substance: CLOTRIMAZOLE
     Indication: PRODUCT USED FOR UNKNOWN INDICATION
     Route: 065
  13. VIGABATRIN (FOR ORAL SOLUTION) [Suspect]
     Active Substance: VIGABATRIN
     Indication: INFANTILE SPASMS
     Route: 048
     Dates: start: 20161221, end: 20170106
  14. ROTARIX [Suspect]
     Active Substance: HUMAN ROTAVIRUS A TYPE G1P(8) STRAIN RIX4414 LIVE ANTIGEN
     Route: 048
     Dates: start: 20160809, end: 20160809
  15. HAEMOPHILUS B CONJUGATE VACCINE NOS [Suspect]
     Active Substance: HAEMOPHILUS B CONJUGATE VACCINE
     Indication: IMMUNISATION
     Route: 051
     Dates: start: 20160809
  16. HAEMOPHILUS B CONJUGATE VACCINE NOS [Suspect]
     Active Substance: HAEMOPHILUS B CONJUGATE VACCINE
     Route: 051
     Dates: start: 20161026, end: 20161026
  17. SODIUM VALPROATE [Concomitant]
     Active Substance: VALPROATE SODIUM
     Indication: PRODUCT USED FOR UNKNOWN INDICATION
     Route: 065
  18. NITRAZEPAM [Suspect]
     Active Substance: NITRAZEPAM
     Indication: SEIZURE
     Route: 048
     Dates: start: 20170202, end: 20170210
  19. PREVNAR 13 [Suspect]
     Active Substance: PNEUMOCOCCAL 13-VALENT CONJUGATE VACCINE
     Indication: IMMUNISATION
     Route: 051
     Dates: start: 20160809, end: 20160809
  20. MELATONIN [Concomitant]
     Active Substance: MELATONIN
     Indication: PRODUCT USED FOR UNKNOWN INDICATION
     Route: 065
  21. RANITIDINE HYDROCHLORIDE. [Concomitant]
     Active Substance: RANITIDINE HYDROCHLORIDE
     Indication: PRODUCT USED FOR UNKNOWN INDICATION
     Route: 065

REACTIONS (14)
  - Tongue movement disturbance [Recovered/Resolved]
  - Hypotonia [Not Recovered/Not Resolved]
  - Dysphagia [Not Recovered/Not Resolved]
  - Dyspnoea [Recovered/Resolved]
  - Body temperature increased [Unknown]
  - Partial seizures [Not Recovered/Not Resolved]
  - Neurological decompensation [Not Recovered/Not Resolved]
  - Movement disorder [Recovered/Resolved with Sequelae]
  - Infantile spasms [Not Recovered/Not Resolved]
  - Cortical visual impairment [Not Recovered/Not Resolved]
  - Petit mal epilepsy [Not Recovered/Not Resolved]
  - Nervous system disorder [Not Recovered/Not Resolved]
  - Screaming [Unknown]
  - Emotional distress [Unknown]

NARRATIVE: CASE EVENT DATE: 20160815
